FAERS Safety Report 9154700 (Version 1)
Quarter: 2013Q1

REPORT INFORMATION
  Report Type: Report from Study
  Country: US (occurrence: US)
  Receive Date: 20130311
  Receipt Date: 20130311
  Transmission Date: 20140127
  Serious: Yes (Other)
  Sender: FDA-Public Use
  Company Number: US-ABBOTT-13P-163-1057631-00

PATIENT
  Sex: Female
  Weight: 104.42 kg

DRUGS (13)
  1. HUMIRA [Suspect]
     Indication: RHEUMATOID ARTHRITIS
     Dates: start: 2009, end: 2010
  2. HUMIRA PEN [Suspect]
     Indication: RHEUMATOID ARTHRITIS
     Dates: start: 2010, end: 2012
  3. HUMIRA PEN [Suspect]
     Dates: start: 2012, end: 20130201
  4. METHOTREXATE [Concomitant]
     Indication: RHEUMATOID ARTHRITIS
  5. RELAFEN [Concomitant]
     Indication: RHEUMATOID ARTHRITIS
  6. INDOCIN [Concomitant]
     Indication: RHEUMATOID ARTHRITIS
  7. PROZAC [Concomitant]
     Indication: DEPRESSION
  8. LASIX [Concomitant]
     Indication: FLUID RETENTION
  9. POTASSIUM [Concomitant]
     Indication: PRODUCT USED FOR UNKNOWN INDICATION
  10. LEVOTHYROXINE [Concomitant]
     Indication: HYPOTHYROIDISM
  11. LOSARTAN [Concomitant]
     Indication: BLOOD PRESSURE ABNORMAL
  12. LOPID [Concomitant]
     Indication: BLOOD CHOLESTEROL ABNORMAL
  13. MULTIVITAMIN [Concomitant]
     Indication: PRODUCT USED FOR UNKNOWN INDICATION

REACTIONS (2)
  - Foot deformity [Unknown]
  - Rheumatoid arthritis [Not Recovered/Not Resolved]
